FAERS Safety Report 15580594 (Version 1)
Quarter: 2018Q4

REPORT INFORMATION
  Report Type: Spontaneous
  Country: US (occurrence: US)
  Receive Date: 20181102
  Receipt Date: 20181102
  Transmission Date: 20190205
  Serious: No
  Sender: FDA-Public Use
  Company Number: US-GLENMARK PHARMACEUTICALS-2018GMK037291

PATIENT

DRUGS (1)
  1. CICLOPIROX OLAMINE CREAM USP, 0.77% [Suspect]
     Active Substance: CICLOPIROX OLAMINE
     Indication: ANAL PRURITUS
     Dosage: UNK, PRN (APPLY EVERY DAY AS NECESSARY
     Route: 061
     Dates: start: 20180829, end: 20180830

REACTIONS (3)
  - Rash [Unknown]
  - Burning sensation [Unknown]
  - Pruritus [Unknown]
